FAERS Safety Report 7554756-X (Version None)
Quarter: 2011Q2

REPORT INFORMATION
  Report Type: 
  Country: None (occurrence: None)
  Receive Date: 20110614
  Receipt Date: 20110614
  Transmission Date: 20111010
  Serious: Yes (Other)
  Sender: FDA-Public Use
  Company Number: None

PATIENT
  Sex: Female
  Weight: 58.9676 kg

DRUGS (1)
  1. MIRENA [Suspect]
     Indication: MENORRHAGIA
     Dates: start: 20110513, end: 20110523

REACTIONS (7)
  - VOMITING [None]
  - TUBO-OVARIAN ABSCESS [None]
  - ENDOMETRITIS [None]
  - WEIGHT DECREASED [None]
  - HEART RATE INCREASED [None]
  - DEVICE DISLOCATION [None]
  - VIRAL INFECTION [None]
